FAERS Safety Report 23322974 (Version 1)
Quarter: 2023Q4

REPORT INFORMATION
  Report Type: Spontaneous
  Country: US (occurrence: None)
  Receive Date: 20231220
  Receipt Date: 20231220
  Transmission Date: 20240109
  Serious: No
  Sender: FDA-Public Use
  Company Number: US-ROCHE-3217307

PATIENT
  Sex: Male
  Weight: 55.388 kg

DRUGS (2)
  1. RITUXAN [Suspect]
     Active Substance: RITUXIMAB
     Indication: Waldenstrom^s macroglobulinaemia
     Route: 041
     Dates: start: 202208
  2. RITUXAN [Suspect]
     Active Substance: RITUXIMAB
     Route: 041
     Dates: start: 202307

REACTIONS (4)
  - Blood immunoglobulin M decreased [Unknown]
  - Peripheral swelling [Recovered/Resolved]
  - Blood immunoglobulin A increased [Unknown]
  - Blood immunoglobulin G increased [Unknown]
